FAERS Safety Report 6896951-9 (Version None)
Quarter: 2010Q3

REPORT INFORMATION
  Report Type: 
  Country: None (occurrence: None)
  Receive Date: 20100802
  Receipt Date: 20070410
  Transmission Date: 20110219
  Serious: Yes (Hospitalization, Other)
  Sender: FDA-Public Use
  Company Number: US-PFIZER INC-2007002488

PATIENT
  Sex: Female
  Weight: 59 kg

DRUGS (10)
  1. LYRICA [Suspect]
     Indication: DRUG WITHDRAWAL SYNDROME
  2. ACCUPRIL [Concomitant]
  3. TOPROL-XL [Concomitant]
  4. XANAX [Concomitant]
  5. PRAVACHOL [Concomitant]
  6. CLONAZEPAM [Concomitant]
  7. AMITRIPTYLINE HYDROCHLORIDE [Concomitant]
  8. OXYCONTIN [Concomitant]
  9. OXYCODONE [Concomitant]
  10. PROMETHAZINE [Concomitant]

REACTIONS (2)
  - ALTERED STATE OF CONSCIOUSNESS [None]
  - AMNESIA [None]
